FAERS Safety Report 11121360 (Version 2)
Quarter: 2017Q1

REPORT INFORMATION
  Report Type: Report from Study
  Country: AU (occurrence: AU)
  Receive Date: 20150519
  Receipt Date: 20170316
  Transmission Date: 20170428
  Serious: Yes (Hospitalization)
  Sender: FDA-Public Use
  Company Number: PHHY2015AU036359

PATIENT
  Age: 29 Year
  Sex: Female
  Weight: 76.9 kg

DRUGS (15)
  1. MYCOPHENOLATE MOFETIL. [Concomitant]
     Active Substance: MYCOPHENOLATE MOFETIL
     Indication: IMMUNOSUPPRESSION
     Dosage: 2 G, UNK
     Route: 065
     Dates: start: 20120525
  2. AZATHIOPRINE. [Concomitant]
     Active Substance: AZATHIOPRINE
     Indication: LUPUS NEPHRITIS
     Dosage: 125 MG (100-125 MG), UNK
     Route: 065
     Dates: start: 20140507
  3. CELLCEPT [Concomitant]
     Active Substance: MYCOPHENOLATE MOFETIL\MYCOPHENOLATE MOFETIL HYDROCHLORIDE
     Indication: LUPUS NEPHRITIS
     Dosage: 2000 MG (1000-2000 MG), UNK
     Route: 065
     Dates: start: 20110710
  4. AVAPRO [Concomitant]
     Active Substance: IRBESARTAN
     Indication: LUPUS NEPHRITIS
     Dosage: 150 MG, UNK
     Route: 065
  5. MYFORTIC [Suspect]
     Active Substance: MYCOPHENOLATE SODIUM
     Dosage: 2160 MG, UNK
     Route: 065
     Dates: start: 20130319, end: 20140304
  6. ALDOMET [Concomitant]
     Active Substance: METHYLDOPA
     Indication: LUPUS NEPHRITIS
     Dosage: 500 MG (150- 500 MG), UNK
     Route: 065
  7. IMURAN [Concomitant]
     Active Substance: AZATHIOPRINE
     Indication: IMMUNOSUPPRESSION
     Dosage: UNK
     Route: 065
  8. ASPIRIN. [Concomitant]
     Active Substance: ASPIRIN
     Indication: HIGH RISK PREGNANCY
     Dosage: 100 MG, UNK
     Route: 065
     Dates: start: 20140724
  9. FOLIC ACID. [Concomitant]
     Active Substance: FOLIC ACID
     Indication: VITAMIN B12 DEFICIENCY
     Dosage: 10 MG (5- 10 MG), UNK
     Route: 065
     Dates: start: 20101230
  10. ELEVIT                             /01730301/ [Concomitant]
     Active Substance: FOLIC ACID\IRON\MINERALS\VITAMINS
     Indication: PREGNANCY
     Dosage: 1 DF, (1000 - 2000 MG)
     Route: 065
     Dates: start: 201406
  11. PREDNISOLONE. [Concomitant]
     Active Substance: PREDNISOLONE
     Indication: LUPUS NEPHRITIS
     Dosage: 50 MG (10-50 MG), UNK
     Route: 065
     Dates: start: 20110107
  12. THYROXINE [Concomitant]
     Active Substance: LEVOTHYROXINE
     Indication: HYPOTHYROIDISM
     Dosage: 50 UG, UNK
     Route: 065
     Dates: start: 20141217, end: 20150115
  13. OSTELIN [Concomitant]
     Active Substance: ERGOCALCIFEROL
     Indication: VITAMIN D DEFICIENCY
     Dosage: 4000 U (2000 - 4000 U), UNK
     Route: 065
     Dates: start: 20110604
  14. MYFORTIC [Suspect]
     Active Substance: MYCOPHENOLATE SODIUM
     Indication: LUPUS NEPHRITIS
     Dosage: 3340 MG, UNK
     Route: 065
  15. AZATHIOPRINE. [Concomitant]
     Active Substance: AZATHIOPRINE
     Indication: IMMUNOSUPPRESSION
     Dosage: 125 MG (100-125 MG), UNK
     Route: 065
     Dates: start: 20140305

REACTIONS (6)
  - Premature delivery [Recovered/Resolved]
  - Maternal exposure during pregnancy [Unknown]
  - Renal impairment [Recovered/Resolved]
  - Pyrexia [Unknown]
  - Proteinuria [Recovered/Resolved]
  - Proteinuria [Not Recovered/Not Resolved]

NARRATIVE: CASE EVENT DATE: 20140618
